FAERS Safety Report 4274088-5 (Version None)
Quarter: 2004Q1

REPORT INFORMATION
  Report Type: 
  Country: None (occurrence: None)
  Receive Date: 20040120
  Receipt Date: 20040105
  Transmission Date: 20041129
  Serious: Yes (Death)
  Sender: FDA-Public Use
  Company Number: US-GLAXOSMITHKLINE-A0493776A

PATIENT
  Sex: Female

DRUGS (1)
  1. LANOXIN [Suspect]
     Dosage: .25MG PER DAY
     Route: 048

REACTIONS (4)
  - DEATH [None]
  - DYSPNOEA [None]
  - MEDICATION ERROR [None]
  - THERAPEUTIC AGENT TOXICITY [None]
